FAERS Safety Report 7877684-9 (Version None)
Quarter: 2011Q4

REPORT INFORMATION
  Report Type: 
  Country: None (occurrence: None)
  Receive Date: 20111031
  Receipt Date: 20111031
  Transmission Date: 20120403
  Serious: Yes (Other)
  Sender: FDA-Public Use
  Company Number: None

PATIENT
  Age: 45 Year
  Sex: Male
  Weight: 102.05 kg

DRUGS (1)
  1. PREDNISONE [Suspect]

REACTIONS (5)
  - ANGER [None]
  - FATIGUE [None]
  - IMPAIRED WORK ABILITY [None]
  - INCREASED APPETITE [None]
  - ACUTE STRESS DISORDER [None]
